FAERS Safety Report 20776795 (Version 1)
Quarter: 2022Q2

REPORT INFORMATION
  Report Type: Spontaneous
  Country: US (occurrence: US)
  Receive Date: 20220502
  Receipt Date: 20220502
  Transmission Date: 20220721
  Serious: No
  Sender: FDA-Public Use
  Company Number: US-LUNDBECK-DKLU3047340

PATIENT
  Age: 62 Year
  Sex: Male

DRUGS (2)
  1. NORTHERA [Suspect]
     Active Substance: DROXIDOPA
     Indication: Orthostatic hypotension
     Route: 048
  2. DROXIDOPA [Concomitant]
     Active Substance: DROXIDOPA

REACTIONS (2)
  - Fall [Unknown]
  - Balance disorder [Unknown]
